FAERS Safety Report 9176915 (Version 1)
Quarter: 2013Q1

REPORT INFORMATION
  Report Type: Spontaneous
  Country: US (occurrence: US)
  Receive Date: 20130321
  Receipt Date: 20130321
  Transmission Date: 20140127
  Serious: Yes (Death)
  Sender: FDA-Public Use
  Company Number: PHEH2013US006501

PATIENT
  Sex: Male

DRUGS (6)
  1. TASIGNA [Suspect]
     Indication: CHRONIC MYELOID LEUKAEMIA
     Dosage: 400 MG, BID
     Route: 048
     Dates: start: 20110816
  2. HYDROXYUREA [Concomitant]
  3. OXYCODONE HCL [Concomitant]
  4. MORPHINE [Concomitant]
  5. ULORIC [Concomitant]
  6. CYMBALTA [Concomitant]

REACTIONS (1)
  - Death [Fatal]
